FAERS Safety Report 23406850 (Version 3)
Quarter: 2024Q1

REPORT INFORMATION
  Report Type: Report from Study
  Country: CN (occurrence: CN)
  Receive Date: 20240116
  Receipt Date: 20240125
  Transmission Date: 20240409
  Serious: No
  Sender: FDA-Public Use
  Company Number: CN-PFIZER INC-PV202400005205

PATIENT
  Age: 53 Year
  Sex: Male

DRUGS (24)
  1. NIRMATRELVIR\RITONAVIR [Suspect]
     Active Substance: NIRMATRELVIR\RITONAVIR
     Indication: COVID-19 treatment
     Dosage: [NIRMATRELVIR 300 MG]/[RITONAVIR 100 MG], Q12H
     Dates: start: 20220413, end: 20220418
  2. NIRMATRELVIR\RITONAVIR [Suspect]
     Active Substance: NIRMATRELVIR\RITONAVIR
     Dosage: [NIRMATRELVIR 300 MG]/[RITONAVIR 100 MG], Q12H
     Dates: start: 20220429, end: 20220503
  3. TACROLIMUS [Concomitant]
     Active Substance: TACROLIMUS
     Dosage: UNK
     Route: 048
     Dates: start: 20220413, end: 20220428
  4. MYCOPHENOLATE MOFETIL [Concomitant]
     Active Substance: MYCOPHENOLATE MOFETIL
     Dosage: UNK
     Route: 048
     Dates: start: 20220413, end: 20220420
  5. PREDNISONE [Concomitant]
     Active Substance: PREDNISONE
     Indication: Immune system disorder
     Dosage: UNK
     Route: 048
     Dates: start: 20220413, end: 20220507
  6. IPRATROPIUM BROMIDE [Concomitant]
     Active Substance: IPRATROPIUM BROMIDE\IPRATROPIUM BROMIDE ANHYDROUS
     Dosage: UNK, SOLUTION
     Route: 055
     Dates: start: 20220413, end: 20220413
  7. IPRATROPIUM BROMIDE [Concomitant]
     Active Substance: IPRATROPIUM BROMIDE\IPRATROPIUM BROMIDE ANHYDROUS
     Dosage: UNK, SOLUTION
     Route: 055
     Dates: start: 20220413, end: 20220428
  8. GLUTATHIONE [Concomitant]
     Active Substance: GLUTATHIONE
     Dosage: UNK, ATOMORAN
     Route: 048
     Dates: start: 20220413, end: 20220507
  9. URSODIOL [Concomitant]
     Active Substance: URSODIOL
     Dosage: UNK
     Route: 048
     Dates: start: 20220413, end: 20220507
  10. BUDESONIDE [Concomitant]
     Active Substance: BUDESONIDE
     Indication: Asthma
     Dosage: UNK, SUSPENSION
     Route: 055
     Dates: start: 20220413, end: 20220428
  11. ACETYLCYSTEINE [Concomitant]
     Active Substance: ACETYLCYSTEINE
     Dosage: UNK, SOLUTION
     Route: 055
     Dates: start: 20220413, end: 20220428
  12. PIPERACILLIN SODIUM\TAZOBACTAM SODIUM [Concomitant]
     Active Substance: PIPERACILLIN SODIUM\TAZOBACTAM SODIUM
     Indication: Infection
     Dosage: UNK
     Route: 042
     Dates: start: 20220417, end: 20220417
  13. HEPARIN CALCIUM [Concomitant]
     Active Substance: HEPARIN CALCIUM
     Indication: COVID-19
     Dosage: UNK
     Route: 058
     Dates: start: 20220417, end: 20220502
  14. AMBROXOL HYDROCHLORIDE [Concomitant]
     Active Substance: AMBROXOL HYDROCHLORIDE
     Indication: Dyspnoea
     Dosage: UNK
     Route: 042
     Dates: start: 20220417, end: 20220427
  15. METFORMIN [Concomitant]
     Active Substance: METFORMIN HYDROCHLORIDE
     Indication: Diabetes mellitus
     Dosage: UNK
     Route: 048
     Dates: start: 20220417, end: 20220507
  16. LEVOFLOXACIN [Concomitant]
     Active Substance: LEVOFLOXACIN
     Indication: Infection
     Dosage: UNK, LEVOFLOXACIN SODIUM CHLORIDE
     Route: 042
     Dates: start: 20220417, end: 20220426
  17. BISOPROLOL FUMARATE [Concomitant]
     Active Substance: BISOPROLOL FUMARATE
     Dosage: UNK
     Route: 048
     Dates: start: 20220418, end: 20220507
  18. HERBALS\DIAMMONIUM GLYCYRRHIZINATE [Concomitant]
     Active Substance: HERBALS\DIAMMONIUM GLYCYRRHIZINATE
     Dosage: UNK, ENTERIC-COATED
     Route: 048
     Dates: start: 20220415
  19. ENTECAVIR [Concomitant]
     Active Substance: ENTECAVIR
     Dosage: UNK
     Route: 048
     Dates: start: 20220417
  20. ACARBOSE [Concomitant]
     Active Substance: ACARBOSE
     Indication: Diabetes mellitus
     Dosage: UNK
     Route: 048
     Dates: start: 20220417
  21. MYCOPHENOLATE MOFETIL [Concomitant]
     Active Substance: MYCOPHENOLATE MOFETIL
     Dosage: UNK, DISPERSIBLE TABLETS
     Route: 042
     Dates: start: 20220417
  22. ALBUMIN HUMAN [Concomitant]
     Active Substance: ALBUMIN HUMAN
     Dosage: UNK
     Route: 042
     Dates: start: 20220418
  23. METHYLPREDNISOLONE SODIUM SUCCINATE [Concomitant]
     Active Substance: METHYLPREDNISOLONE SODIUM SUCCINATE
     Indication: COVID-19
     Dosage: UNK
     Route: 042
     Dates: start: 20220418
  24. OXYGEN [Concomitant]
     Active Substance: OXYGEN
     Indication: COVID-19
     Dosage: UNK, SUPPLEMENTAL THERAPY
     Route: 055
     Dates: start: 20220412, end: 20220502

REACTIONS (1)
  - Overdose [Unknown]
